FAERS Safety Report 7435742-7 (Version None)
Quarter: 2011Q2

REPORT INFORMATION
  Report Type: 
  Country: None (occurrence: None)
  Receive Date: 20110425
  Receipt Date: 20110413
  Transmission Date: 20111010
  Serious: Yes (Hospitalization, Other)
  Sender: FDA-Public Use
  Company Number: US-ELI_LILLY_AND_COMPANY-US201007003914

PATIENT
  Sex: Female

DRUGS (5)
  1. FORTEO [Suspect]
     Dosage: 20 UG, DAILY (1/D)
  2. FORTEO [Suspect]
     Dosage: 20 UG, DAILY (1/D)
  3. FORTEO [Suspect]
     Dosage: 20 UG, DAILY (1/D)
  4. FORTEO [Suspect]
     Indication: OSTEOPOROSIS
     Dosage: 20 UG, DAILY (1/D)
  5. FORTEO [Suspect]
     Dosage: 20 UG, DAILY (1/D)
     Route: 065

REACTIONS (24)
  - FALL [None]
  - PYREXIA [None]
  - PNEUMONIA [None]
  - BRONCHITIS [None]
  - PRURITUS [None]
  - SCRATCH [None]
  - PHARYNGITIS [None]
  - FEELING DRUNK [None]
  - INJECTION SITE HAEMORRHAGE [None]
  - OXYGEN SATURATION DECREASED [None]
  - VOMITING [None]
  - FATIGUE [None]
  - ARTHRALGIA [None]
  - DIARRHOEA [None]
  - DYSURIA [None]
  - MUSCULOSKELETAL PAIN [None]
  - PAIN [None]
  - DEHYDRATION [None]
  - PAIN IN EXTREMITY [None]
  - CONTUSION [None]
  - RESPIRATORY FAILURE [None]
  - BACK PAIN [None]
  - MUSCLE SPASMS [None]
  - ASTHENIA [None]
